FAERS Safety Report 7901082-2 (Version None)
Quarter: 2011Q4

REPORT INFORMATION
  Report Type: 
  Country: None (occurrence: None)
  Receive Date: 20111108
  Receipt Date: 20111101
  Transmission Date: 20120403
  Serious: Yes (Death)
  Sender: FDA-Public Use
  Company Number: IT-ELI_LILLY_AND_COMPANY-IT201111001035

PATIENT

DRUGS (4)
  1. CARBOPLATIN [Concomitant]
     Dosage: 4.5 DF, DAY 1
     Route: 042
  2. CARBOPLATIN [Concomitant]
     Dosage: 4 DF, DAY 1
     Route: 042
  3. CARBOPLATIN [Concomitant]
     Indication: SMALL CELL LUNG CANCER STAGE UNSPECIFIED
     Dosage: 3.5 DF, DAY 1
     Route: 042
  4. GEMCITABINE HYDROCHLORIDE [Suspect]
     Indication: SMALL CELL LUNG CANCER STAGE UNSPECIFIED
     Dosage: 1000 MG/M2, ON DAYS 1 AND 8, EVERY 3 WEEKS
     Route: 042

REACTIONS (2)
  - ATRIAL FIBRILLATION [None]
  - CARDIAC FAILURE [None]
